FAERS Safety Report 4581062-8 (Version None)
Quarter: 2005Q1

REPORT INFORMATION
  Report Type: 
  Country: None (occurrence: None)
  Receive Date: 20050214
  Receipt Date: 20040728
  Transmission Date: 20050727
  Serious: Yes (Hospitalization)
  Sender: FDA-Public Use
  Company Number: US-GLAXOSMITHKLINE-A0520084A

PATIENT
  Age: 25 Year
  Sex: Female

DRUGS (2)
  1. LAMICTAL [Suspect]
     Indication: DRUG USE FOR UNKNOWN INDICATION
     Route: 048
  2. DEPAKOTE [Concomitant]

REACTIONS (5)
  - CHEILITIS [None]
  - ILL-DEFINED DISORDER [None]
  - RASH [None]
  - SCAR [None]
  - STEVENS-JOHNSON SYNDROME [None]
